FAERS Safety Report 8516437-5 (Version None)
Quarter: 2012Q3

REPORT INFORMATION
  Report Type: 
  Country: None (occurrence: None)
  Receive Date: 20120718
  Receipt Date: 20120709
  Transmission Date: 20120928
  Serious: No
  Sender: FDA-Public Use
  Company Number: US-009507513-1207USA002255

PATIENT

DRUGS (2)
  1. JANUMET [Concomitant]
     Indication: DIABETES MELLITUS
     Dosage: UNK
     Route: 048
  2. JANUMET XR [Suspect]
     Indication: DIABETES MELLITUS
     Dosage: 50/1000MG,2 TABLETS AT BEDTIME
     Route: 048
     Dates: start: 20120624, end: 20120701

REACTIONS (2)
  - DIARRHOEA [None]
  - DIZZINESS [None]
